FAERS Safety Report 8510495-X (Version None)
Quarter: 2012Q3

REPORT INFORMATION
  Report Type: 
  Country: None (occurrence: None)
  Receive Date: 20120716
  Receipt Date: 20120702
  Transmission Date: 20120928
  Serious: Yes (Death, Life-Threatening, Hospitalization, Disabling, Other)
  Sender: FDA-Public Use
  Company Number: US-009507513-2012SP022940

PATIENT

DRUGS (3)
  1. NUVARING [Suspect]
     Dosage: ONE RING FOR 3 WEEKS, FOLLOWED BY A RING FREE WEEK
     Route: 067
     Dates: start: 20080909, end: 20110501
  2. ALBUTEROL [Concomitant]
     Dosage: UNK
     Dates: start: 20070101
  3. NUVARING [Suspect]
     Dosage: ONE RING FOR 3 WEEKS, FOLLOWED BY A RING FREE WEEK
     Route: 067
     Dates: start: 20030401, end: 20080701

REACTIONS (3)
  - PULMONARY EMBOLISM [None]
  - THORACIC OUTLET SYNDROME [None]
  - DEEP VEIN THROMBOSIS [None]
